FAERS Safety Report 6101763-X (Version None)
Quarter: 2009Q1

REPORT INFORMATION
  Report Type: 
  Country: None (occurrence: None)
  Receive Date: 20090227
  Receipt Date: 20080109
  Transmission Date: 20090719
  Serious: Yes (Hospitalization)
  Sender: FDA-Public Use
  Company Number: 238583

PATIENT
  Age: 13 Year
  Sex: Female

DRUGS (7)
  1. NUTROPIN AQ [Suspect]
     Indication: RENAL FAILURE CHRONIC
     Dosage: 4 MG, QD, SUBCUTANEOUS
     Route: 058
     Dates: start: 20060718, end: 20070224
  2. ADVAIR DISKUS 100/50 [Concomitant]
  3. CELLCEPT [Concomitant]
  4. ENALAPRIL MALEATE [Concomitant]
  5. NORVASC [Concomitant]
  6. ZOLOFT [Concomitant]
  7. PREDNISONE TAB [Concomitant]

REACTIONS (1)
  - BENIGN INTRACRANIAL HYPERTENSION [None]
